FAERS Safety Report 4751875-8 (Version None)
Quarter: 2005Q3

REPORT INFORMATION
  Report Type: 
  Country: None (occurrence: None)
  Receive Date: 20050822
  Receipt Date: 20050622
  Transmission Date: 20060218
  Serious: No
  Sender: FDA-Public Use
  Company Number: PHEH2005US07045

PATIENT
  Age: 62 Year
  Sex: Female

DRUGS (1)
  1. ZELNORM [Suspect]
     Dosage: ORAL
     Route: 048
     Dates: start: 20050101, end: 20050101

REACTIONS (4)
  - ARTHRALGIA [None]
  - DYSPEPSIA [None]
  - HEART RATE INCREASED [None]
  - HEART RATE IRREGULAR [None]
